FAERS Safety Report 8881989 (Version 1)
Quarter: 2012Q4

REPORT INFORMATION
  Report Type: 
  Country: IN (occurrence: IN)
  Receive Date: 20121105
  Receipt Date: 20121105
  Transmission Date: 20130627
  Serious: Yes (Hospitalization)
  Sender: FDA-Public Use
  Company Number: IN-MYLANLABS-2012S1022020

PATIENT
  Age: 32 Year
  Sex: Female

DRUGS (1)
  1. LEVOTHYROXINE SODIUM [Suspect]
     Indication: DRUG ABUSE
     Dosage: recommended by a local gym instructor to be taken in the morning empty stomach
     Route: 048

REACTIONS (3)
  - Thyrotoxic periodic paralysis [Recovered/Resolved]
  - Drug abuse [Recovered/Resolved]
  - Hyperthyroidism [Recovered/Resolved]
